FAERS Safety Report 8204951-1 (Version None)
Quarter: 2012Q1

REPORT INFORMATION
  Report Type: 
  Country: None (occurrence: None)
  Receive Date: 20120313
  Receipt Date: 20120308
  Transmission Date: 20120608
  Serious: Yes (Other)
  Sender: FDA-Public Use
  Company Number: US-PFIZER INC-2012063146

PATIENT
  Sex: Male
  Weight: 102 kg

DRUGS (5)
  1. DILANTIN [Suspect]
     Indication: EPILEPSY
     Dosage: 200 MG, 2X/DAY
     Dates: start: 19841201
  2. CLONAZEPAM [Suspect]
     Dosage: UNK
  3. ONFI [Suspect]
     Dosage: 10 MG, UNK
  4. CLONAZEPAM [Suspect]
     Dosage: 2 MG DAILY
  5. CLONAZEPAM [Suspect]
     Dosage: 1 MG, 5X/DAY

REACTIONS (4)
  - MIGRAINE [None]
  - CONVULSION [None]
  - FRUSTRATION [None]
  - MEMORY IMPAIRMENT [None]
